FAERS Safety Report 20015451 (Version 1)
Quarter: 2021Q4

REPORT INFORMATION
  Report Type: Spontaneous
  Country: CA (occurrence: None)
  Receive Date: 20211030
  Receipt Date: 20211030
  Transmission Date: 20220303
  Serious: Yes (Disabling, Other)
  Sender: FDA-Public Use
  Company Number: None

PATIENT
  Age: 37 Year
  Sex: Female
  Weight: 94.95 kg

DRUGS (9)
  1. NITROFURANTOIN MONOHYDRATE/MACROCRYSTALS (MONOHYDRATE/MACROCRYSTALS) [Suspect]
     Active Substance: NITROFURANTOIN\NITROFURANTOIN MONOHYDRATE
     Indication: Urinary tract infection
     Dosage: OTHER QUANTITY : 14 CAPSULE(S);?FREQUENCY : TWICE A DAY;?
     Route: 048
     Dates: start: 20211004, end: 20211008
  2. CLONAZEPAM [Suspect]
     Active Substance: CLONAZEPAM
  3. JAMIESON VITAMIN B12 [Concomitant]
  4. JAMIESON VITAMIN C 500 MG [Concomitant]
  5. WEBBER NATURALS D3 [Concomitant]
  6. MAGNESIUM CITRATE [Concomitant]
     Active Substance: MAGNESIUM CITRATE
  7. ACETAMINOPHEN [Concomitant]
     Active Substance: ACETAMINOPHEN
  8. PEPCID AC [Concomitant]
     Active Substance: FAMOTIDINE
  9. CETIRIZINE HYDROCHLORIDE [Suspect]
     Active Substance: CETIRIZINE HYDROCHLORIDE

REACTIONS (3)
  - Neurotoxicity [None]
  - Neuralgia [None]
  - Therapy cessation [None]

NARRATIVE: CASE EVENT DATE: 20211008
